FAERS Safety Report 9963029 (Version 2)
Quarter: 2014Q1

REPORT INFORMATION
  Report Type: Spontaneous
  Country: FR (occurrence: FR)
  Receive Date: 20140305
  Receipt Date: 20140305
  Transmission Date: 20141002
  Serious: Yes (Other)
  Sender: FDA-Public Use
  Company Number: FR-BAXTER-2014BAX009277

PATIENT
  Age: 11 Year
  Sex: Female
  Weight: 36.8 kg

DRUGS (2)
  1. EXTRANEAL, SOLUTION POUR DIALYSE P?RITON?ALE [Suspect]
     Indication: PERITONEAL DIALYSIS
     Dosage: ONE BAG
     Route: 033
     Dates: start: 201402
  2. BICAVERA GLUCOSE [Concomitant]
     Indication: PERITONEAL DIALYSIS
     Route: 033

REACTIONS (2)
  - Injection site pain [Recovered/Resolved]
  - Condition aggravated [Unknown]
